FAERS Safety Report 12642544 (Version 1)
Quarter: 2016Q3

REPORT INFORMATION
  Report Type: Spontaneous
  Country: US (occurrence: US)
  Receive Date: 20160810
  Receipt Date: 20160810
  Transmission Date: 20161109
  Serious: No
  Sender: FDA-Public Use
  Company Number: US-ASTRAZENECA-2016SE64315

PATIENT
  Age: 74 Year
  Sex: Female
  Weight: 54 kg

DRUGS (5)
  1. LISINOPRIL. [Suspect]
     Active Substance: LISINOPRIL
     Indication: PROPHYLAXIS
  2. ASPIRIN. [Concomitant]
     Active Substance: ASPIRIN
  3. METFORMIN [Concomitant]
     Active Substance: METFORMIN HYDROCHLORIDE
     Indication: DIABETES MELLITUS
  4. GLIMIPIRIDE [Concomitant]
     Active Substance: GLIMEPIRIDE
     Indication: DIABETES MELLITUS
  5. ONGLYZA [Suspect]
     Active Substance: SAXAGLIPTIN HYDROCHLORIDE
     Indication: TYPE 2 DIABETES MELLITUS
     Route: 048
     Dates: start: 2009, end: 201601

REACTIONS (6)
  - Pain in extremity [Not Recovered/Not Resolved]
  - Weight decreased [Not Recovered/Not Resolved]
  - Body height decreased [Not Recovered/Not Resolved]
  - Burning sensation [Not Recovered/Not Resolved]
  - Hypoaesthesia [Not Recovered/Not Resolved]
  - Memory impairment [Unknown]

NARRATIVE: CASE EVENT DATE: 2013
